FAERS Safety Report 21939734 (Version 1)
Quarter: 2023Q1

REPORT INFORMATION
  Report Type: Report from Study
  Country: US (occurrence: US)
  Receive Date: 20230201
  Receipt Date: 20230201
  Transmission Date: 20230418
  Serious: No
  Sender: FDA-Public Use
  Company Number: US-EXELIXIS-CABO-22048708

PATIENT
  Age: 58 Year
  Sex: Female

DRUGS (2)
  1. CABOMETYX [Suspect]
     Active Substance: CABOZANTINIB S-MALATE
     Indication: Renal cancer
     Dosage: 60 MG, QD
     Route: 048
     Dates: start: 202201, end: 20220201
  2. CABOMETYX [Suspect]
     Active Substance: CABOZANTINIB S-MALATE
     Dosage: 20 MG, QD
     Route: 048
     Dates: start: 20220215

REACTIONS (5)
  - Oropharyngeal pain [Unknown]
  - Blister [Not Recovered/Not Resolved]
  - Pain in extremity [Recovering/Resolving]
  - Stomatitis [Unknown]
  - Cough [Unknown]

NARRATIVE: CASE EVENT DATE: 20220201
